FAERS Safety Report 4293345-X (Version None)
Quarter: 2004Q1

REPORT INFORMATION
  Report Type: 
  Country: None (occurrence: None)
  Receive Date: 20040209
  Receipt Date: 20030605
  Transmission Date: 20041129
  Serious: No
  Sender: FDA-Public Use
  Company Number: RPH 35/03

PATIENT
  Age: 54 Year
  Sex: Male

DRUGS (2)
  1. MDP-BRACCO [Suspect]
     Indication: BONE SCAN
     Dosage: IV
     Route: 042
  2. CIPROFLOXACIN [Concomitant]

REACTIONS (1)
  - INJECTION SITE ERYTHEMA [None]
